FAERS Safety Report 5341954-9 (Version None)
Quarter: 2007Q2

REPORT INFORMATION
  Report Type: 
  Country: None (occurrence: None)
  Receive Date: 20070601
  Receipt Date: 20070522
  Transmission Date: 20071010
  Serious: Yes (Life-Threatening)
  Sender: FDA-Public Use
  Company Number: HQWYE308122MAY07

PATIENT
  Sex: Male

DRUGS (5)
  1. CORDARONE [Suspect]
     Indication: VENTRICULAR EXTRASYSTOLES
     Route: 042
     Dates: start: 20070422, end: 20070423
  2. NEXIUM [Concomitant]
     Indication: REFLUX OESOPHAGITIS
     Route: 048
  3. BUSCOPAN [Concomitant]
     Indication: PANCREATITIS
     Dosage: 20 MG UP TO X 4/DAY
     Route: 058
  4. METHADONE HCL [Interacting]
     Indication: DRUG DEPENDENCE
     Route: 048
     Dates: start: 20010101, end: 20070101
  5. METHADONE HCL [Interacting]
     Route: 048
     Dates: start: 20070101

REACTIONS (3)
  - DRUG INTERACTION [None]
  - ELECTROCARDIOGRAM QT PROLONGED [None]
  - TORSADE DE POINTES [None]
